FAERS Safety Report 5406887-8 (Version None)
Quarter: 2007Q3

REPORT INFORMATION
  Report Type: 
  Country: None (occurrence: None)
  Receive Date: 20070802
  Receipt Date: 20070719
  Transmission Date: 20080115
  Serious: Yes (Hospitalization)
  Sender: FDA-Public Use
  Company Number: 2006P1000474

PATIENT
  Age: 50 Year
  Sex: Male
  Weight: 110 kg

DRUGS (7)
  1. RETEPLASE (RETEPLASE) [Suspect]
     Indication: ACUTE MYOCARDIAL INFARCTION
     Dosage: 5 IU; X2; IV
     Route: 042
     Dates: start: 20060324, end: 20060324
  2. ABCIXIMAB (ABCIXIMAB) [Suspect]
     Indication: ACUTE MYOCARDIAL INFARCTION
     Dosage: 13 ML; X1; IV, 4.0 ML; QH; IV
     Route: 042
     Dates: start: 20060324, end: 20060324
  3. ABCIXIMAB (ABCIXIMAB) [Suspect]
     Indication: ACUTE MYOCARDIAL INFARCTION
     Dosage: 13 ML; X1; IV, 4.0 ML; QH; IV
     Route: 042
     Dates: start: 20060324, end: 20060324
  4. HEPARIN [Concomitant]
  5. ACE INHIBITOR NOS [Concomitant]
  6. BETA BLOCKING AGENTS [Concomitant]
  7. HEPARIN [Concomitant]

REACTIONS (2)
  - CORONARY ARTERY DISEASE [None]
  - MYOCARDIAL INFARCTION [None]
